FAERS Safety Report 19808471 (Version 1)
Quarter: 2021Q3

REPORT INFORMATION
  Report Type: Spontaneous
  Country: FR (occurrence: FR)
  Receive Date: 20210909
  Receipt Date: 20210909
  Transmission Date: 20211014
  Serious: Yes (Hospitalization, Other)
  Sender: FDA-Public Use
  Company Number: FR-ASTELLAS-2021US030975

PATIENT
  Age: 39 Year
  Sex: Female

DRUGS (1)
  1. PROGRAF [Suspect]
     Active Substance: TACROLIMUS
     Indication: RENAL TRANSPLANT
     Dosage: 6.5 MG, TWICE DAILY (MORNING AND EVENING)
     Route: 065

REACTIONS (2)
  - Organic brain syndrome [Unknown]
  - Transplant rejection [Unknown]

NARRATIVE: CASE EVENT DATE: 202104
